FAERS Safety Report 16344630 (Version 1)
Quarter: 2019Q2

REPORT INFORMATION
  Report Type: Spontaneous
  Country: DE (occurrence: DE)
  Receive Date: 20190522
  Receipt Date: 20190522
  Transmission Date: 20190711
  Serious: Yes (Other)
  Sender: FDA-Public Use
  Company Number: PHHY2019DE114376

PATIENT
  Sex: Female

DRUGS (2)
  1. RITALIN LA [Suspect]
     Active Substance: METHYLPHENIDATE HYDROCHLORIDE
     Indication: PRODUCT USED FOR UNKNOWN INDICATION
     Dosage: 1 DF, QD
     Route: 065
     Dates: start: 201808
  2. RITALIN LA [Suspect]
     Active Substance: METHYLPHENIDATE HYDROCHLORIDE
     Dosage: 2 DF, QD (WHEN HAVING STRESS)
     Route: 065

REACTIONS (3)
  - Oropharyngeal discomfort [Recovering/Resolving]
  - Gardnerella infection [Not Recovered/Not Resolved]
  - Vulvovaginal pruritus [Unknown]
